FAERS Safety Report 9719614 (Version 1)
Quarter: 2013Q4

REPORT INFORMATION
  Report Type: Spontaneous
  Country: US (occurrence: US)
  Receive Date: 20131128
  Receipt Date: 20131128
  Transmission Date: 20140711
  Serious: Yes (Death)
  Sender: FDA-Public Use
  Company Number: US-ROCHE-1309626

PATIENT
  Age: 79 Year
  Sex: Male

DRUGS (1)
  1. VALCYTE [Suspect]
     Indication: PULMONARY MASS
     Route: 065

REACTIONS (1)
  - Death [Fatal]
